FAERS Safety Report 8846854 (Version 1)
Quarter: 2012Q4

REPORT INFORMATION
  Report Type: Spontaneous
  Country: US (occurrence: None)
  Receive Date: 20121016
  Receipt Date: 20121016
  Transmission Date: 20130627
  Serious: Yes (Hospitalization)
  Sender: FDA-Public Use
  Company Number: US-2012-10975

PATIENT
  Age: 70 Year
  Sex: Male

DRUGS (8)
  1. CILOSTAZOL [Suspect]
  2. COUMADIN (WARFARIN SODIUM) [Concomitant]
  3. PRAVASTATIN (PRAVASTATIN SODIUM) [Concomitant]
  4. CLOPIDOGREL (CLOPIDOGREL SULFATE) [Concomitant]
  5. GABAPENTIN [Concomitant]
  6. VERAPAMIL (VERAPAMIL HYDROCHLORIDE) [Concomitant]
  7. ACCUPRIL (QUINAPRIL HYDROCHLORIDE) [Concomitant]
  8. FUROSEMIDE [Concomitant]

REACTIONS (3)
  - Femoral artery aneurysm [None]
  - Staphylococcal infection [None]
  - Muscle abscess [None]
